FAERS Safety Report 14983226 (Version 1)
Quarter: 2018Q2

REPORT INFORMATION
  Report Type: Spontaneous
  Country: US (occurrence: US)
  Receive Date: 20180607
  Receipt Date: 20180607
  Transmission Date: 20180711
  Serious: No
  Sender: FDA-Public Use
  Company Number: US-JNJFOC-20160105525

PATIENT
  Age: 72 Year
  Sex: Female
  Weight: 53.98 kg

DRUGS (2)
  1. IMODIUM A-D [Suspect]
     Active Substance: LOPERAMIDE HYDROCHLORIDE
     Route: 048
  2. IMODIUM A-D [Suspect]
     Active Substance: LOPERAMIDE HYDROCHLORIDE
     Indication: DIARRHOEA
     Dosage: 2X
     Route: 048
     Dates: start: 20160107, end: 20160108

REACTIONS (2)
  - Drug ineffective [Unknown]
  - Product quality issue [Unknown]
